FAERS Safety Report 7342622-4 (Version None)
Quarter: 2011Q1

REPORT INFORMATION
  Report Type: 
  Country: None (occurrence: None)
  Receive Date: 20110310
  Receipt Date: 20100908
  Transmission Date: 20110831
  Serious: Yes (Hospitalization)
  Sender: FDA-Public Use
  Company Number: US-BAYER-201017000NA

PATIENT
  Sex: Female
  Weight: 65.909 kg

DRUGS (8)
  1. ANTIBIOTICS [Concomitant]
  2. PHENERGAN [Concomitant]
  3. LEXAPRO [Concomitant]
  4. YAZ [Suspect]
     Indication: ORAL CONTRACEPTION
     Route: 048
     Dates: start: 20060601, end: 20060901
  5. UNCODEABLE ^UNCLASSIFIABLE^ [Concomitant]
  6. MINOCYCLINE HCL [Concomitant]
  7. YASMIN [Suspect]
     Indication: PRODUCT USED FOR UNKNOWN INDICATION
     Route: 048
     Dates: start: 20060501, end: 20060901
  8. HEART MEDICATION (NOS) [Concomitant]

REACTIONS (3)
  - DEEP VEIN THROMBOSIS [None]
  - PAIN IN EXTREMITY [None]
  - OEDEMA PERIPHERAL [None]
